FAERS Safety Report 9817080 (Version 3)
Quarter: 2014Q2

REPORT INFORMATION
  Report Type: Report from Study
  Country: MX (occurrence: MX)
  Receive Date: 20140114
  Receipt Date: 20140516
  Transmission Date: 20141212
  Serious: Yes (Hospitalization)
  Sender: FDA-Public Use
  Company Number: PHHY2014MX003697

PATIENT
  Age: 85 Year
  Sex: Female

DRUGS (4)
  1. EXFORGE [Suspect]
     Indication: HYPERTENSION
     Dosage: 1 DF (160/10 MG), DAILY
     Route: 048
  2. EXFORGE [Suspect]
     Dosage: 1 DF (320/5 MG), DAILY
     Route: 048
     Dates: start: 20131215
  3. BICONCOR [Concomitant]
     Indication: BLOOD PRESSURE ABNORMAL
     Dosage: UNK UKN, UNK
  4. IXICROL [Concomitant]
     Indication: DEPRESSION
     Dosage: UNK UKN, UNK

REACTIONS (4)
  - Cataract [Recovered/Resolved]
  - Rash maculo-papular [Not Recovered/Not Resolved]
  - Oedema peripheral [Not Recovered/Not Resolved]
  - Blood pressure inadequately controlled [Recovered/Resolved]
